FAERS Safety Report 21687546 (Version 1)
Quarter: 2022Q4

REPORT INFORMATION
  Report Type: Spontaneous
  Country: CA (occurrence: CA)
  Receive Date: 20221206
  Receipt Date: 20221206
  Transmission Date: 20230113
  Serious: Yes (Other)
  Sender: FDA-Public Use
  Company Number: None

PATIENT
  Age: 6 Year
  Sex: Female

DRUGS (1)
  1. SINGULAIR [Suspect]
     Active Substance: MONTELUKAST SODIUM
     Dosage: 5 MG, DAILY/5 MILLIGRAM, 1 EVERY 1 (DAYS)
     Route: 048
     Dates: start: 20150806, end: 20170901

REACTIONS (2)
  - Alice in wonderland syndrome [Recovered/Resolved]
  - Dysmetropsia [Recovered/Resolved]

NARRATIVE: CASE EVENT DATE: 20170413
